FAERS Safety Report 4978804-6 (Version None)
Quarter: 2006Q2

REPORT INFORMATION
  Report Type: 
  Country: None (occurrence: None)
  Receive Date: 20060420
  Receipt Date: 20050318
  Transmission Date: 20061013
  Serious: Yes (Hospitalization)
  Sender: FDA-Public Use
  Company Number: US-MERCK-0503USA03839

PATIENT
  Age: 90 Year
  Sex: Female

DRUGS (4)
  1. VIOXX [Suspect]
     Route: 048
  2. HYDROCHLOROTHIAZIDE [Concomitant]
     Route: 048
  3. DYNACIRC [Concomitant]
     Route: 048
  4. MICARDIS [Concomitant]
     Route: 065

REACTIONS (6)
  - ANAEMIA [None]
  - DYSPNOEA EXACERBATED [None]
  - DYSPNOEA EXERTIONAL [None]
  - GASTROINTESTINAL HAEMORRHAGE [None]
  - ISCHAEMIC CEREBRAL INFARCTION [None]
  - NERVOUS SYSTEM DISORDER [None]
